FAERS Safety Report 7927974-6 (Version None)
Quarter: 2011Q4

REPORT INFORMATION
  Report Type: 
  Country: None (occurrence: None)
  Receive Date: 20111118
  Receipt Date: 20111110
  Transmission Date: 20120403
  Serious: Yes (Other)
  Sender: FDA-Public Use
  Company Number: CH-GILEAD-2011-0046607

PATIENT
  Age: 57 Year
  Sex: Female

DRUGS (5)
  1. VIREAD [Suspect]
     Indication: HIV INFECTION
     Dosage: UNK
     Dates: start: 20030101, end: 20110101
  2. EFAVIRENZ [Concomitant]
     Dosage: UNK
     Dates: start: 20030101
  3. VI-DE3 [Concomitant]
     Dosage: UNK
     Route: 048
     Dates: start: 20111027
  4. VI-DE3 [Concomitant]
     Dosage: UNK
     Dates: start: 20100421
  5. LAMIVUDINE (EPIVIR HBV) [Concomitant]
     Dosage: UNK
     Dates: start: 20050101

REACTIONS (5)
  - CEREBROVASCULAR ACCIDENT [None]
  - BLOOD ALKALINE PHOSPHATASE INCREASED [None]
  - BONE DENSITY DECREASED [None]
  - BLOOD 25-HYDROXYCHOLECALCIFEROL DECREASED [None]
  - HYPERTENSION [None]
